FAERS Safety Report 5345940-4 (Version None)
Quarter: 2007Q2

REPORT INFORMATION
  Report Type: 
  Country: None (occurrence: None)
  Receive Date: 20070605
  Receipt Date: 20070528
  Transmission Date: 20071010
  Serious: Yes (Hospitalization)
  Sender: FDA-Public Use
  Company Number: B0471313A

PATIENT
  Age: 6 Year
  Sex: Male

DRUGS (6)
  1. AMOXICILLIN TRIHYDRATE [Suspect]
     Indication: STREPTOCOCCAL INFECTION
     Dosage: 250MG THREE TIMES PER DAY
     Route: 048
     Dates: start: 20070423, end: 20070502
  2. ASVERIN [Concomitant]
     Indication: STREPTOCOCCAL INFECTION
     Dosage: 55MG PER DAY
     Route: 048
     Dates: start: 20070421, end: 20070502
  3. MUCOSAL [Concomitant]
     Indication: STREPTOCOCCAL INFECTION
     Dosage: 5.5G PER DAY
     Route: 048
     Dates: start: 20070421, end: 20070502
  4. PERIACTIN [Concomitant]
     Indication: STREPTOCOCCAL INFECTION
     Dosage: .15G PER DAY
     Dates: start: 20070421, end: 20070502
  5. MEPTIN [Concomitant]
     Indication: STREPTOCOCCAL INFECTION
     Dosage: 15MCG PER DAY
     Route: 048
     Dates: start: 20070421, end: 20070502
  6. ONON [Concomitant]
     Indication: STREPTOCOCCAL INFECTION
     Dosage: 65G PER DAY
     Route: 048
     Dates: start: 20070421, end: 20070502

REACTIONS (5)
  - DRUG ERUPTION [None]
  - ERYTHEMA MULTIFORME [None]
  - PRURITUS [None]
  - PYREXIA [None]
  - RASH [None]
